FAERS Safety Report 7705220-6 (Version None)
Quarter: 2011Q3

REPORT INFORMATION
  Report Type: 
  Country: None (occurrence: None)
  Receive Date: 20110818
  Receipt Date: 20110810
  Transmission Date: 20111222
  Serious: Yes (Death, Hospitalization, Other)
  Sender: FDA-Public Use
  Company Number: 2009AL003924

PATIENT
  Age: 74 Year
  Sex: Male
  Weight: 88.4514 kg

DRUGS (11)
  1. FUROSEMIDE [Concomitant]
  2. MORPHINE [Concomitant]
  3. SIMAVASTATIN [Concomitant]
  4. TRAVATAN [Concomitant]
  5. ATIVAN [Concomitant]
  6. FINASTERIDE [Concomitant]
  7. DIGOXIN [Suspect]
     Indication: ARRHYTHMIA
     Dosage: .250 MG; QD;O
     Route: 048
     Dates: start: 20051022, end: 20080328
  8. GLYCOPYRROLATE [Concomitant]
  9. WARFARIN SODIUM [Concomitant]
  10. DOXAZOSIN MESYLATE [Concomitant]
  11. EZETIMIBE [Concomitant]

REACTIONS (40)
  - LOSS OF CONSCIOUSNESS [None]
  - MICROALBUMINURIA [None]
  - ARTHRALGIA [None]
  - PULSELESS ELECTRICAL ACTIVITY [None]
  - HEART RATE INCREASED [None]
  - NO THERAPEUTIC RESPONSE [None]
  - CARDIOMYOPATHY [None]
  - ACUTE MYOCARDIAL INFARCTION [None]
  - UNRESPONSIVE TO STIMULI [None]
  - PAIN IN EXTREMITY [None]
  - BLOOD POTASSIUM DECREASED [None]
  - HYPOXIC-ISCHAEMIC ENCEPHALOPATHY [None]
  - TERMINAL STATE [None]
  - RESPIRATORY RATE INCREASED [None]
  - ECONOMIC PROBLEM [None]
  - CONVULSION [None]
  - SHOCK [None]
  - PETECHIAE [None]
  - APNOEA [None]
  - EJECTION FRACTION DECREASED [None]
  - AORTIC VALVE INCOMPETENCE [None]
  - LEFT VENTRICULAR DYSFUNCTION [None]
  - PROSTATIC SPECIFIC ANTIGEN INCREASED [None]
  - ASPARTATE AMINOTRANSFERASE INCREASED [None]
  - WHITE BLOOD CELL COUNT INCREASED [None]
  - LEFT ATRIAL DILATATION [None]
  - RIGHT ATRIAL DILATATION [None]
  - MITRAL VALVE CALCIFICATION [None]
  - CARDIO-RESPIRATORY ARREST [None]
  - PERIPHERAL COLDNESS [None]
  - DILATATION VENTRICULAR [None]
  - CARDIOACTIVE DRUG LEVEL DECREASED [None]
  - WEIGHT INCREASED [None]
  - ALANINE AMINOTRANSFERASE INCREASED [None]
  - CEREBRAL ATROPHY [None]
  - TRICUSPID VALVE INCOMPETENCE [None]
  - VENTRICULAR FIBRILLATION [None]
  - BLOOD CALCIUM DECREASED [None]
  - BLOOD ALBUMIN DECREASED [None]
  - VENTRICULAR HYPOKINESIA [None]
